FAERS Safety Report 8507557-X (Version None)
Quarter: 2012Q3

REPORT INFORMATION
  Report Type: 
  Country: None (occurrence: None)
  Receive Date: 20120713
  Receipt Date: 20120702
  Transmission Date: 20120928
  Serious: Yes (Hospitalization)
  Sender: FDA-Public Use
  Company Number: NL-BIOGENIDEC-2012BI022457

PATIENT
  Age: 58 Year
  Sex: Female

DRUGS (3)
  1. CLONIDINE [Concomitant]
  2. TYSABRI [Suspect]
     Indication: RELAPSING-REMITTING MULTIPLE SCLEROSIS
     Route: 042
     Dates: start: 20080222
  3. CELECOXIB [Concomitant]

REACTIONS (1)
  - APPENDICITIS PERFORATED [None]
